FAERS Safety Report 20326376 (Version 1)
Quarter: 2022Q1

REPORT INFORMATION
  Report Type: Spontaneous
  Country: CH (occurrence: CH)
  Receive Date: 20220112
  Receipt Date: 20220112
  Transmission Date: 20220423
  Serious: Yes (Other)
  Sender: FDA-Public Use
  Company Number: None

PATIENT
  Age: 63 Year
  Sex: Female

DRUGS (9)
  1. METOPROLOL SUCCINATE [Suspect]
     Active Substance: METOPROLOL SUCCINATE
     Dosage: 25 MILLIGRAM, QD
     Route: 048
  2. VITAMIN B6 [Suspect]
     Active Substance: PYRIDOXINE HYDROCHLORIDE
     Dosage: 40 MILLIGRAM, QD
     Route: 048
  3. RIMACTAZID [Suspect]
     Active Substance: ISONIAZID\RIFAMPIN
     Dosage: FOR A PERIOD OF 8 MONTHS AND SCHEDULED UNTIL EARLY FEBRUARY 2022
     Route: 065
     Dates: start: 20210707
  4. MOXIFLOXACIN HYDROCHLORIDE [Suspect]
     Active Substance: MOXIFLOXACIN HYDROCHLORIDE
     Dosage: UNK UNKNOWN
     Route: 065
     Dates: start: 20210504, end: 20210707
  5. CLOPIDOGREL [Suspect]
     Active Substance: CLOPIDOGREL BISULFATE
     Dosage: 75 MILLIGRAM, QD
     Route: 048
  6. AMLODIPINE [Suspect]
     Active Substance: AMLODIPINE BESYLATE
     Dosage: 5 MILLIGRAM, QD, (MORNING)
     Route: 048
  7. DAFALGAN [Concomitant]
     Active Substance: ACETAMINOPHEN
     Dosage: AS NECESSARY
     Route: 048
  8. BROMAZEPAM [Concomitant]
     Active Substance: BROMAZEPAM
     Dosage: 1.5 MILLIGRAM,AS NECESSARY
     Route: 048
  9. ATACAND [Concomitant]
     Active Substance: CANDESARTAN CILEXETIL
     Dosage: 8 MILLIGRAM
     Route: 048

REACTIONS (1)
  - Peripheral sensory neuropathy [Recovering/Resolving]

NARRATIVE: CASE EVENT DATE: 20210701
